FAERS Safety Report 21982161 (Version 1)
Quarter: 2023Q1

REPORT INFORMATION
  Report Type: Spontaneous
  Country: CN (occurrence: CN)
  Receive Date: 20230213
  Receipt Date: 20230213
  Transmission Date: 20230418
  Serious: Yes (Other)
  Sender: FDA-Public Use
  Company Number: CN-BAYER-2023A004729

PATIENT
  Sex: Male

DRUGS (3)
  1. XARELTO [Suspect]
     Active Substance: RIVAROXABAN
     Indication: Thrombosis
     Dosage: 10 MG, QD
     Route: 048
     Dates: start: 202301, end: 202301
  2. XARELTO [Suspect]
     Active Substance: RIVAROXABAN
     Indication: Peripheral swelling
     Dosage: 15 MG, QD
     Route: 048
     Dates: start: 202301, end: 2023
  3. XARELTO [Suspect]
     Active Substance: RIVAROXABAN
     Indication: Thrombosis
     Dosage: 10 MG, QD
     Route: 048
     Dates: start: 2023

REACTIONS (4)
  - Thrombosis [Unknown]
  - Peripheral swelling [Recovering/Resolving]
  - Underdose [Unknown]
  - Inappropriate schedule of product administration [Unknown]

NARRATIVE: CASE EVENT DATE: 20230101
